FAERS Safety Report 8934089 (Version 1)
Quarter: 2012Q4

REPORT INFORMATION
  Report Type: 
  Country: US (occurrence: US)
  Receive Date: 20121129
  Receipt Date: 20121129
  Transmission Date: 20130627
  Serious: No
  Sender: FDA-Public Use
  Company Number: US-GLAXOSMITHKLINE-A0952041A

PATIENT
  Age: 70 Year
  Sex: Female

DRUGS (5)
  1. WELLBUTRIN SR [Suspect]
     Indication: PRODUCT USED FOR UNKNOWN INDICATION
     Dosage: 150MGD per day
     Route: 048
     Dates: end: 20110912
  2. VILAZODONE [Suspect]
     Indication: DEPRESSION
     Dosage: 40MGD per day
     Route: 048
     Dates: start: 20110911
  3. XANAX [Suspect]
     Indication: PRODUCT USED FOR UNKNOWN INDICATION
     Dosage: .25MGD per day
     Route: 048
     Dates: start: 20111010
  4. SYNTHROID [Concomitant]
  5. RITALIN [Concomitant]

REACTIONS (4)
  - Dyskinesia [Unknown]
  - Tremor [Unknown]
  - Fatigue [Not Recovered/Not Resolved]
  - Diarrhoea [Unknown]
